FAERS Safety Report 6423857-1 (Version None)
Quarter: 2009Q4

REPORT INFORMATION
  Report Type: 
  Country: None (occurrence: None)
  Receive Date: 20091028
  Receipt Date: 20091020
  Transmission Date: 20100525
  Serious: Yes (Death, Hospitalization)
  Sender: FDA-Public Use
  Company Number: 2009SP031537

PATIENT
  Age: 45 Year
  Sex: Female

DRUGS (19)
  1. DEXAMETHASONE [Suspect]
     Indication: DRUG USE FOR UNKNOWN INDICATION
     Dosage: 12 MG; PO
     Route: 048
     Dates: start: 20081001
  2. BLINDED THERAPY (SUNITINIB MALEATE OR PLACEBO) (NO 2 PREP, NAME) [Suspect]
     Indication: NON-SMALL CELL LUNG CANCER
     Dosage: 37.5 MG;QD; 25 MG;QD
     Dates: start: 20080911, end: 20080930
  3. BLINDED THERAPY (SUNITINIB MALEATE OR PLACEBO) (NO 2 PREP, NAME) [Suspect]
     Indication: NON-SMALL CELL LUNG CANCER
     Dosage: 37.5 MG;QD; 25 MG;QD
     Dates: start: 20081001, end: 20081025
  4. BLINDED THERAPY (SUNITINIB MALEATE OR PLACEBO) (NO 2 PREP, NAME) [Suspect]
  5. ERLOTINIB HYDROCHLORIDE [Suspect]
     Indication: NON-SMALL CELL LUNG CANCER
     Dosage: 150 MG;QD;PO; 100 MG;QD;PO
     Route: 048
     Dates: start: 20080911, end: 20080924
  6. ERLOTINIB HYDROCHLORIDE [Suspect]
     Indication: NON-SMALL CELL LUNG CANCER
     Dosage: 150 MG;QD;PO; 100 MG;QD;PO
     Route: 048
     Dates: start: 20080925, end: 20081027
  7. CHLORPHENIRAMINE MALEATE [Concomitant]
  8. HYDROCORTISONE [Concomitant]
  9. AQUEOUS CREAM [Concomitant]
  10. ACETAMINOPHEN [Concomitant]
  11. MORPHINE SULFATE [Concomitant]
  12. AMITRIPTYLINE [Concomitant]
  13. LANSOPRAZOL [Concomitant]
  14. LEVOMEPROMAZINE [Concomitant]
  15. FUROSEMIDE [Concomitant]
  16. NULYTELY [Concomitant]
  17. CO-DANTHRAMER [Concomitant]
  18. LOPERAMIDE [Concomitant]
  19. DOMPERIDONE [Concomitant]

REACTIONS (6)
  - GENERAL PHYSICAL HEALTH DETERIORATION [None]
  - LOWER RESPIRATORY TRACT INFECTION [None]
  - MALIGNANT NEOPLASM PROGRESSION [None]
  - MUSCULAR WEAKNESS [None]
  - NON-SMALL CELL LUNG CANCER [None]
  - RASH GENERALISED [None]
